FAERS Safety Report 19006650 (Version 1)
Quarter: 2021Q1

REPORT INFORMATION
  Report Type: Spontaneous
  Country: US (occurrence: US)
  Receive Date: 20210312
  Receipt Date: 20210312
  Transmission Date: 20210420
  Serious: No
  Sender: FDA-Public Use
  Company Number: None

PATIENT
  Sex: Female

DRUGS (23)
  1. AROPIPRAZOLE [Concomitant]
  2. BUT/APAP/CAF [Concomitant]
  3. TALTZ [Suspect]
     Active Substance: IXEKIZUMAB
     Indication: PSORIASIS
     Route: 058
     Dates: start: 20200123
  4. BUPREN/NALOX [Concomitant]
     Active Substance: BUPRENORPHINE\NALOXONE
  5. HYDROXYZ HCL [Concomitant]
     Active Substance: HYDROXYZINE HYDROCHLORIDE
  6. METOPROL SUC ER [Concomitant]
     Active Substance: METOPROLOL SUCCINATE
  7. SERTRALINE [Concomitant]
     Active Substance: SERTRALINE HYDROCHLORIDE
  8. CLONAZEPAM. [Concomitant]
     Active Substance: CLONAZEPAM
  9. LISINOPRIL. [Concomitant]
     Active Substance: LISINOPRIL
  10. OFLOXACIN. [Concomitant]
     Active Substance: OFLOXACIN
  11. SUBOXONE [Concomitant]
     Active Substance: BUPRENORPHINE HYDROCHLORIDE\NALOXONE HYDROCHLORIDE
  12. ADDERALL XR [Concomitant]
     Active Substance: AMPHETAMINE ASPARTATE\AMPHETAMINE SULFATE\DEXTROAMPHETAMINE SACCHARATE\DEXTROAMPHETAMINE SULFATE
  13. ETODOLAC. [Concomitant]
     Active Substance: ETODOLAC
  14. FLUTICASONE. [Concomitant]
     Active Substance: FLUTICASONE
  15. HYDROXYZ PAM [Concomitant]
     Active Substance: HYDROXYZINE PAMOATE
  16. AMOXICILLIN. [Concomitant]
     Active Substance: AMOXICILLIN
  17. BACLOFEN. [Concomitant]
     Active Substance: BACLOFEN
  18. CLOBETASOL [Concomitant]
     Active Substance: CLOBETASOL
  19. FERROUS SULF [Concomitant]
     Active Substance: FERROUS SULFATE
  20. KLONOPIN [Concomitant]
     Active Substance: CLONAZEPAM
  21. DEXTROAMPHET SACCHARAT, AMPHET ASPARTATE, DEXTROAMPHET SULFATE AND AMPHET SULFAT [Concomitant]
     Active Substance: AMPHETAMINE ASPARTATE\AMPHETAMINE SULFATE\DEXTROAMPHETAMINE SACCHARATE\DEXTROAMPHETAMINE SULFATE
  22. DEXILANT [Concomitant]
     Active Substance: DEXLANSOPRAZOLE
  23. TRAMADOL HCL [Concomitant]
     Active Substance: TRAMADOL HYDROCHLORIDE

REACTIONS (5)
  - Rash [None]
  - Infection [None]
  - Pneumonia [None]
  - Condition aggravated [None]
  - Therapy interrupted [None]
